FAERS Safety Report 4329860-X (Version None)
Quarter: 2004Q1

REPORT INFORMATION
  Report Type: 
  Country: None (occurrence: None)
  Receive Date: 20040329
  Receipt Date: 20040318
  Transmission Date: 20041129
  Serious: Yes (Death, Hospitalization)
  Sender: FDA-Public Use
  Company Number: JP-JNJFOC-20031003425

PATIENT
  Age: 87 Year
  Sex: Male

DRUGS (2)
  1. LEVOFLOXACIN [Suspect]
     Indication: RESPIRATORY TRACT INFECTION
     Dates: start: 20031001, end: 20031004
  2. FENOFIBRATE [Concomitant]

REACTIONS (4)
  - HEPATIC FAILURE [None]
  - MYOGLOBINAEMIA [None]
  - PROTHROMBIN TIME RATIO DECREASED [None]
  - RHABDOMYOLYSIS [None]
